FAERS Safety Report 7358223-8 (Version None)
Quarter: 2011Q1

REPORT INFORMATION
  Report Type: 
  Country: None (occurrence: None)
  Receive Date: 20110314
  Receipt Date: 20110314
  Transmission Date: 20110831
  Serious: Yes (Life-Threatening, Hospitalization)
  Sender: FDA-Public Use
  Company Number: None

PATIENT
  Age: 35 Year
  Sex: Female
  Weight: 84.8226 kg

DRUGS (1)
  1. LAMOTRIGINE [Suspect]
     Indication: AFFECTIVE DISORDER
     Dosage: 1 ONCE DAILY PO
     Route: 048
     Dates: start: 20110310, end: 20110310

REACTIONS (13)
  - FEELING HOT [None]
  - THROAT TIGHTNESS [None]
  - INAPPROPRIATE AFFECT [None]
  - CRYING [None]
  - DYSPNOEA [None]
  - RASH [None]
  - PRURITUS GENERALISED [None]
  - SWOLLEN TONGUE [None]
  - HYPOAESTHESIA ORAL [None]
  - CONVERSION DISORDER [None]
  - HALLUCINATION, AUDITORY [None]
  - HYPOAESTHESIA [None]
  - BONE PAIN [None]
